FAERS Safety Report 10272280 (Version 1)
Quarter: 2014Q3

REPORT INFORMATION
  Report Type: Spontaneous
  Country: JP (occurrence: JP)
  Receive Date: 20140702
  Receipt Date: 20140702
  Transmission Date: 20150326
  Serious: Yes (Hospitalization, Other)
  Sender: FDA-Public Use
  Company Number: JP-BRISTOL-MYERS SQUIBB COMPANY-21131289

PATIENT

DRUGS (1)
  1. ERBITUX [Suspect]
     Active Substance: CETUXIMAB
     Indication: HEAD AND NECK CANCER
     Route: 041

REACTIONS (2)
  - Bone marrow failure [Recovered/Resolved]
  - Dysphagia [Not Recovered/Not Resolved]
